FAERS Safety Report 9450831 (Version 1)
Quarter: 2013Q3

REPORT INFORMATION
  Report Type: Spontaneous
  Country: GB (occurrence: GB)
  Receive Date: 20130809
  Receipt Date: 20130809
  Transmission Date: 20140515
  Serious: Yes (Other)
  Sender: FDA-Public Use
  Company Number: GB-PFIZER INC-2013232408

PATIENT
  Age: 52 Year
  Sex: Female
  Weight: 66 kg

DRUGS (1)
  1. CHAMPIX [Suspect]
     Indication: SMOKING CESSATION THERAPY
     Dosage: 500 UG, UNK
     Route: 048
     Dates: start: 20130320, end: 20130403

REACTIONS (5)
  - Tearfulness [Recovered/Resolved]
  - Depressed mood [Recovered/Resolved]
  - Impulsive behaviour [Recovered/Resolved]
  - Autophobia [Recovered/Resolved]
  - Tobacco user [Not Recovered/Not Resolved]
